FAERS Safety Report 19018099 (Version 1)
Quarter: 2021Q1

REPORT INFORMATION
  Report Type: Spontaneous
  Country: DE (occurrence: DE)
  Receive Date: 20210317
  Receipt Date: 20210317
  Transmission Date: 20210420
  Serious: Yes (Other)
  Sender: FDA-Public Use
  Company Number: DE-AUROBINDO-AUR-APL-2021-010641

PATIENT
  Age: 68 Year
  Sex: Male
  Weight: 68 kg

DRUGS (7)
  1. MABTHERA [Suspect]
     Active Substance: RITUXIMAB
     Indication: NON-HODGKIN^S LYMPHOMA
     Dosage: UNK
     Route: 065
  2. MABTHERA [Suspect]
     Active Substance: RITUXIMAB
     Dosage: 500 MILLIGRAM (DATE OF TREATMENT: JUN/2018, JUL/2018, AUG/2018, SEP/208, NOV/2018 AND JAN/2019)
     Route: 042
     Dates: start: 201805
  3. MABTHERA [Suspect]
     Active Substance: RITUXIMAB
     Dosage: UNK
     Route: 042
     Dates: start: 20180122
  4. MABTHERA [Suspect]
     Active Substance: RITUXIMAB
     Dosage: 338 MILLIGRAM ( 8 WEEK, 2 ADMINISTRATIONS IN TOTAL)
     Route: 042
     Dates: start: 201811, end: 201901
  5. SILYBUM MARIANUM [Concomitant]
     Active Substance: DIETARY SUPPLEMENT\HERBALS\MILK THISTLE
     Indication: LIVER DISORDER
     Dosage: UNK
     Route: 065
  6. RIBAVIRIN FILM COATED TABLETS [Suspect]
     Active Substance: RIBAVIRIN
     Indication: HEPATITIS E
     Dosage: UNK
     Route: 065
     Dates: end: 201908
  7. MABTHERA [Suspect]
     Active Substance: RITUXIMAB
     Dosage: 100 MILLIGRAM (DATE OF TREATMENT: JUN/2018, JUL/2018, AUG/2018, SEP/208, NOV/2018 AND JAN/2019)
     Route: 042
     Dates: start: 201805

REACTIONS (2)
  - Hepatitis E [Not Recovered/Not Resolved]
  - Off label use [Unknown]

NARRATIVE: CASE EVENT DATE: 2019
